FAERS Safety Report 7130200-1 (Version None)
Quarter: 2010Q4

REPORT INFORMATION
  Report Type: 
  Country: None (occurrence: None)
  Receive Date: 20101201
  Receipt Date: 20101119
  Transmission Date: 20110411
  Serious: Yes (Hospitalization)
  Sender: FDA-Public Use
  Company Number: FR-CEPHALON-2010006178

PATIENT
  Sex: Male

DRUGS (1)
  1. TREANDA [Suspect]
     Route: 042
     Dates: start: 20090915, end: 20101011

REACTIONS (9)
  - ANAEMIA [None]
  - APLASIA [None]
  - CLOSTRIDIUM DIFFICILE COLITIS [None]
  - DIARRHOEA [None]
  - FEBRILE NEUTROPENIA [None]
  - GENERAL PHYSICAL HEALTH DETERIORATION [None]
  - HYPERTHERMIA [None]
  - LEUKOPENIA [None]
  - THROMBOCYTOPENIA [None]
